FAERS Safety Report 22280090 (Version 1)
Quarter: 2023Q2

REPORT INFORMATION
  Report Type: Spontaneous
  Country: GB (occurrence: GB)
  Receive Date: 20230503
  Receipt Date: 20230503
  Transmission Date: 20230721
  Serious: Yes (Hospitalization)
  Sender: FDA-Public Use
  Company Number: GB-MYLANLABS-2023M1046287

PATIENT
  Sex: Female

DRUGS (2)
  1. CLOZARIL [Suspect]
     Active Substance: CLOZAPINE
     Indication: Schizophrenia
     Dosage: UNK
     Route: 048
     Dates: start: 20100913, end: 20230424
  2. CLOZARIL [Suspect]
     Active Substance: CLOZAPINE
     Dosage: UNK (STARTED RE-TITRATION)
     Route: 065

REACTIONS (1)
  - Hospitalisation [Unknown]
